FAERS Safety Report 9123118 (Version 1)
Quarter: 2013Q1

REPORT INFORMATION
  Report Type: Spontaneous
  Country: US (occurrence: US)
  Receive Date: 20130227
  Receipt Date: 20130227
  Transmission Date: 20140127
  Serious: Yes (Other)
  Sender: FDA-Public Use
  Company Number: US-JNJFOC-20130208014

PATIENT
  Age: 37 Year
  Sex: Male

DRUGS (6)
  1. INVEGA SUSTENNA [Suspect]
     Indication: SCHIZOPHRENIA
     Route: 042
     Dates: end: 2013
  2. INVEGA [Suspect]
     Indication: SCHIZOPHRENIA
     Route: 048
     Dates: end: 2013
  3. INVEGA [Suspect]
     Indication: SCHIZOPHRENIA
     Route: 048
     Dates: end: 2013
  4. INVEGA [Suspect]
     Indication: SCHIZOPHRENIA
     Route: 048
     Dates: end: 2013
  5. VYVANSE [Concomitant]
     Route: 065
  6. FANAPT [Concomitant]
     Route: 065

REACTIONS (2)
  - Breast neoplasm [Not Recovered/Not Resolved]
  - Gynaecomastia [Not Recovered/Not Resolved]
